FAERS Safety Report 5274930-5 (Version None)
Quarter: 2007Q1

REPORT INFORMATION
  Report Type: 
  Country: None (occurrence: None)
  Receive Date: 20061208
  Receipt Date: 20060419
  Transmission Date: 20070707
  Serious: No
  Sender: FDA-Public Use
  Company Number: 2006UW06935

PATIENT
  Age: 56 Year
  Sex: Female
  Weight: 58.967 kg

DRUGS (6)
  1. CRESTOR [Suspect]
     Indication: BLOOD CHOLESTEROL INCREASED
     Dosage: 5 MG PO
     Route: 048
  2. NEXIUM [Concomitant]
  3. CITRACAL [Concomitant]
  4. VITAMIN CAP [Concomitant]
  5. COMBIPATH [Concomitant]
  6. VAGIFEM [Concomitant]

REACTIONS (8)
  - ASTHENIA [None]
  - DIZZINESS [None]
  - FATIGUE [None]
  - FEELING ABNORMAL [None]
  - FEELING HOT [None]
  - HEART RATE INCREASED [None]
  - PALPITATIONS [None]
  - SYNCOPE [None]
